FAERS Safety Report 11110805 (Version 1)
Quarter: 2015Q2

REPORT INFORMATION
  Report Type: Spontaneous
  Country: CH (occurrence: CH)
  Receive Date: 20150513
  Receipt Date: 20150513
  Transmission Date: 20150821
  Serious: Yes (Hospitalization)
  Sender: FDA-Public Use
  Company Number: PHHY2015CH056029

PATIENT
  Age: 54 Year
  Sex: Male

DRUGS (22)
  1. VENLAFAXIN [Concomitant]
     Active Substance: VENLAFAXINE HYDROCHLORIDE
     Dosage: 150 MG, QD
     Route: 048
  2. NOVALGIN [Suspect]
     Active Substance: METAMIZOLE SODIUM
     Indication: POSTOPERATIVE ANALGESIA
     Dosage: 500 MG, UNK
     Route: 048
     Dates: start: 20150216, end: 20150317
  3. CLEXANE [Concomitant]
     Active Substance: ENOXAPARIN SODIUM
     Indication: THROMBOSIS PROPHYLAXIS
     Dosage: 60 MG, QD
     Route: 058
     Dates: start: 20150216
  4. ERYTHROCYTES [Concomitant]
     Active Substance: HUMAN RED BLOOD CELL
     Indication: KNEE OPERATION
     Route: 041
     Dates: start: 20150216, end: 20150216
  5. FRAGMIN [Suspect]
     Active Substance: DALTEPARIN SODIUM
     Indication: THROMBOSIS PROPHYLAXIS
     Dosage: 5000 IU, UNK
     Route: 058
     Dates: start: 20150224, end: 20150306
  6. FLUDEX [Concomitant]
     Active Substance: INDAPAMIDE
     Indication: HYPERTENSION
     Dosage: 1.5 MG, QD
     Route: 048
  7. FERRUM HAUSMANN [Concomitant]
     Active Substance: FERROUS FUMARATE
     Indication: PRODUCT USED FOR UNKNOWN INDICATION
     Dosage: 100 MG, QD
     Route: 048
  8. ROPIVACAINE [Concomitant]
     Active Substance: ROPIVACAINE
     Indication: KNEE OPERATION
     Route: 065
     Dates: start: 20150216, end: 20150216
  9. CARBOSTESIN [Concomitant]
     Active Substance: BUPIVACAINE HYDROCHLORIDE
     Indication: KNEE OPERATION
     Route: 065
     Dates: start: 20150216, end: 20150216
  10. NEXIUM [Suspect]
     Active Substance: ESOMEPRAZOLE MAGNESIUM
     Indication: GASTROOESOPHAGEAL REFLUX PROPHYLAXIS
     Dosage: UNK
     Route: 048
  11. BALDRIPARAN FUER DIE NACHT [Suspect]
     Active Substance: VALERIAN
     Indication: PRODUCT USED FOR UNKNOWN INDICATION
     Dosage: 441 MG, UNK
     Route: 048
     Dates: start: 20150224, end: 20150227
  12. VENLAFAXIN [Concomitant]
     Active Substance: VENLAFAXINE HYDROCHLORIDE
     Indication: ATTENTION DEFICIT/HYPERACTIVITY DISORDER
     Dosage: 75 MG, QD
     Route: 048
  13. ZINACEF [Suspect]
     Active Substance: CEFUROXIME SODIUM
     Indication: KNEE OPERATION
     Dosage: 1.5 G, UNK
     Route: 041
     Dates: start: 20150216
  14. OXYCONTIN [Concomitant]
     Active Substance: OXYCODONE HYDROCHLORIDE
     Indication: POSTOPERATIVE ANALGESIA
     Dosage: 5 MG, BID
     Route: 048
     Dates: start: 20150217, end: 20150218
  15. SINTROM [Suspect]
     Active Substance: ACENOCOUMAROL
     Indication: THROMBOSIS PROPHYLAXIS
     Dosage: 1 MG, UNK
     Route: 048
     Dates: start: 20150222, end: 20150224
  16. XARELTO [Suspect]
     Active Substance: RIVAROXABAN
     Indication: THROMBOSIS PROPHYLAXIS
     Dosage: 10 MG, UNK
     Route: 048
     Dates: start: 20150307, end: 20150308
  17. ZOLPIDEM [Suspect]
     Active Substance: ZOLPIDEM\ZOLPIDEM TARTRATE
     Indication: PRODUCT USED FOR UNKNOWN INDICATION
     Dosage: 10 MG, UNK
     Route: 048
     Dates: start: 20150227, end: 20150308
  18. DAFALGAN [Suspect]
     Active Substance: ACETAMINOPHEN
     Indication: POSTOPERATIVE ANALGESIA
     Dosage: 1 G, UNK
     Route: 048
     Dates: start: 20150216, end: 20150224
  19. VALVERDE [Concomitant]
     Active Substance: HERBALS
     Indication: PRODUCT USED FOR UNKNOWN INDICATION
     Route: 048
     Dates: start: 20150223, end: 20150223
  20. DORMICUM//MIDAZOLAM MALEATE [Concomitant]
     Indication: PREOPERATIVE CARE
     Dosage: 2.5 MG, UNK
     Route: 048
     Dates: start: 20150216, end: 20150216
  21. RISPERIDON [Concomitant]
     Active Substance: RISPERIDONE
     Indication: ATTENTION DEFICIT/HYPERACTIVITY DISORDER
     Dosage: 1 MG, BID
     Route: 048
  22. VOLUVEN [Concomitant]
     Active Substance: HYDROXYETHYL STARCH 130/0.4
     Indication: KNEE OPERATION
     Route: 041
     Dates: start: 20150216, end: 20150216

REACTIONS (3)
  - Antinuclear antibody positive [Unknown]
  - Hepatitis cholestatic [Recovering/Resolving]
  - Jaundice [Recovering/Resolving]

NARRATIVE: CASE EVENT DATE: 20150308
